FAERS Safety Report 16652369 (Version 1)
Quarter: 2019Q3

REPORT INFORMATION
  Report Type: Spontaneous
  Country: US (occurrence: US)
  Receive Date: 20190731
  Receipt Date: 20190731
  Transmission Date: 20191004
  Serious: No
  Sender: FDA-Public Use
  Company Number: US-FLEXION THERAPEUTICS, INC.-2019FLS000077

PATIENT
  Age: 71 Year
  Sex: Male

DRUGS (2)
  1. ZILRETTA [Suspect]
     Active Substance: TRIAMCINOLONE ACETONIDE
     Indication: PRODUCT USED FOR UNKNOWN INDICATION
     Route: 014
     Dates: start: 201901, end: 201901
  2. ZILRETTA [Suspect]
     Active Substance: TRIAMCINOLONE ACETONIDE
     Route: 014
     Dates: start: 201904, end: 201904

REACTIONS (2)
  - Inappropriate schedule of product administration [Recovered/Resolved]
  - Arthralgia [Unknown]

NARRATIVE: CASE EVENT DATE: 2019
